FAERS Safety Report 4860661-X (Version None)
Quarter: 2005Q4

REPORT INFORMATION
  Report Type: 
  Country: None (occurrence: None)
  Receive Date: 20051216
  Receipt Date: 20051201
  Transmission Date: 20060501
  Serious: Yes (Other)
  Sender: FDA-Public Use
  Company Number: USA0511112818

PATIENT
  Age: 9 Year
  Sex: Female
  Weight: 26.8 kg

DRUGS (2)
  1. STRATTERA [Suspect]
     Indication: ATTENTION DEFICIT/HYPERACTIVITY DISORDER
     Dosage: 25 MG,
     Dates: start: 20040111, end: 20051102
  2. CONCERTA [Concomitant]

REACTIONS (1)
  - SUICIDE ATTEMPT [None]
